FAERS Safety Report 6457438-0 (Version None)
Quarter: 2009Q4

REPORT INFORMATION
  Report Type: 
  Country: None (occurrence: None)
  Receive Date: 20091125
  Receipt Date: 20091118
  Transmission Date: 20100525
  Serious: Yes (Death, Hospitalization)
  Sender: FDA-Public Use
  Company Number: PR-ABBOTT-09P-131-0498621-00

PATIENT
  Sex: Male
  Weight: 61.29 kg

DRUGS (9)
  1. KALETRA [Suspect]
     Indication: HIV INFECTION
     Dosage: 400/100 MG
     Route: 048
     Dates: start: 20081120
  2. ISENTRESS [Suspect]
     Indication: HIV INFECTION
     Route: 048
     Dates: start: 20081120
  3. PROCRIT [Concomitant]
     Indication: ANAEMIA
     Dates: start: 20081119, end: 20081119
  4. PROCRIT [Concomitant]
     Dates: start: 20081202, end: 20081202
  5. PROCRIT [Concomitant]
     Dates: start: 20081217, end: 20081217
  6. PROCRIT [Concomitant]
     Dates: start: 20081223, end: 20081223
  7. MULTI-VITAMINS [Concomitant]
     Indication: ANAEMIA
     Dates: start: 20081119, end: 20090211
  8. ALBUTEROL [Concomitant]
     Indication: CHRONIC OBSTRUCTIVE PULMONARY DISEASE
     Dates: start: 20081114, end: 20090211
  9. MONTELUKAST SODIUM [Concomitant]
     Indication: CHRONIC OBSTRUCTIVE PULMONARY DISEASE
     Dates: start: 20081114, end: 20090211

REACTIONS (4)
  - CELLULITIS [None]
  - PNEUMONIA BACTERIAL [None]
  - SEPSIS [None]
  - THROMBOPHLEBITIS [None]
